FAERS Safety Report 15866842 (Version 5)
Quarter: 2019Q3

REPORT INFORMATION
  Report Type: Report from Study
  Country: JP (occurrence: JP)
  Receive Date: 20190125
  Receipt Date: 20190709
  Transmission Date: 20191004
  Serious: Yes (Hospitalization)
  Sender: FDA-Public Use
  Company Number: JP-EISAI MEDICAL RESEARCH-EC-2019-050864

PATIENT
  Age: 38 Year
  Sex: Female
  Weight: 46 kg

DRUGS (8)
  1. ERIBULIN [Suspect]
     Active Substance: ERIBULIN
     Indication: BREAST CANCER
     Route: 041
     Dates: start: 20190107, end: 20190107
  2. REBAMIPIDE [Concomitant]
     Active Substance: REBAMIPIDE
  3. ERIBULIN [Suspect]
     Active Substance: ERIBULIN
     Route: 041
     Dates: start: 20190128
  4. THIURAGYL [Concomitant]
     Active Substance: PROPYLTHIOURACIL
  5. MAGMITT [Concomitant]
     Active Substance: MAGNESIUM OXIDE
  6. ESTRANA [Concomitant]
     Active Substance: ESTRADIOL
  7. LANSOPRAZOLE. [Concomitant]
     Active Substance: LANSOPRAZOLE
  8. OXYCODONE HYDROCHLORIDE HYDRATE [Concomitant]
     Active Substance: OXYCODONE HYDROCHLORIDE

REACTIONS (2)
  - Febrile neutropenia [Recovered/Resolved]
  - Dehydration [Recovered/Resolved]

NARRATIVE: CASE EVENT DATE: 20190115
